FAERS Safety Report 7529623-8 (Version None)
Quarter: 2011Q2

REPORT INFORMATION
  Report Type: 
  Country: None (occurrence: None)
  Receive Date: 20110607
  Receipt Date: 20110520
  Transmission Date: 20111010
  Serious: Yes (Hospitalization)
  Sender: FDA-Public Use
  Company Number: A0809153A

PATIENT
  Age: 55 Year
  Sex: Male
  Weight: 131.8 kg

DRUGS (5)
  1. GABAPENTIN [Concomitant]
  2. SIMVASTATIN [Concomitant]
  3. AVANDIA [Suspect]
     Indication: DIABETES MELLITUS
     Dosage: 8MG PER DAY
     Route: 048
     Dates: start: 20031001, end: 20071001
  4. METFORMIN HCL [Concomitant]
  5. LISINOPRIL [Concomitant]

REACTIONS (3)
  - MYOCARDIAL INFARCTION [None]
  - MITRAL VALVE DISEASE [None]
  - PERICARDIAL DISEASE [None]
